FAERS Safety Report 6641462-9 (Version None)
Quarter: 2010Q1

REPORT INFORMATION
  Report Type: 
  Country: None (occurrence: None)
  Receive Date: 20100317
  Receipt Date: 20100317
  Transmission Date: 20100710
  Serious: Yes (Death)
  Sender: FDA-Public Use
  Company Number: None

PATIENT
  Sex: Female

DRUGS (1)
  1. NEUPOGEN [Suspect]
     Indication: OESOPHAGEAL CARCINOMA
     Dosage: 300 MG DAILY SUBQ
     Route: 058
     Dates: start: 20081030, end: 20100313

REACTIONS (1)
  - DEATH [None]
